FAERS Safety Report 8235891-X (Version None)
Quarter: 2012Q1

REPORT INFORMATION
  Report Type: 
  Country: None (occurrence: None)
  Receive Date: 20120326
  Receipt Date: 20120316
  Transmission Date: 20120608
  Serious: Yes (Other)
  Sender: FDA-Public Use
  Company Number: US-ASTRAZENECA-2012SE18827

PATIENT
  Age: 87 Year
  Sex: Female

DRUGS (1)
  1. METOPROLOL SUCCINATE [Suspect]
     Route: 048

REACTIONS (2)
  - SINGLE FUNCTIONAL KIDNEY [None]
  - NEPHROLITHIASIS [None]
